FAERS Safety Report 7880558-0 (Version None)
Quarter: 2011Q4

REPORT INFORMATION
  Report Type: 
  Country: None (occurrence: None)
  Receive Date: 20111101
  Receipt Date: 20111027
  Transmission Date: 20120403
  Serious: Yes (Other)
  Sender: FDA-Public Use
  Company Number: US-PFIZER INC-2011263547

PATIENT
  Sex: Female

DRUGS (1)
  1. GEODON [Suspect]
     Indication: DEPRESSION
     Dosage: 80 MG

REACTIONS (3)
  - FALL [None]
  - TARDIVE DYSKINESIA [None]
  - CONCUSSION [None]
